FAERS Safety Report 4867014-9 (Version None)
Quarter: 2005Q4

REPORT INFORMATION
  Report Type: 
  Country: None (occurrence: None)
  Receive Date: 20051227
  Receipt Date: 20050218
  Transmission Date: 20060501
  Serious: Yes (Hospitalization, Other)
  Sender: FDA-Public Use
  Company Number: US-MERCK-0502USA02937

PATIENT
  Age: 69 Year
  Sex: Female
  Weight: 82 kg

DRUGS (5)
  1. VIOXX [Suspect]
     Indication: ARTHRITIS
     Route: 048
     Dates: start: 20000906, end: 20040719
  2. ATENOLOL [Concomitant]
     Route: 065
  3. ZOLOFT [Concomitant]
     Route: 065
  4. ASPIRIN [Concomitant]
     Route: 065
  5. NORCO [Concomitant]
     Route: 065

REACTIONS (3)
  - ADVERSE EVENT [None]
  - CHEST PAIN [None]
  - MYOCARDIAL INFARCTION [None]
